FAERS Safety Report 4501537-7 (Version None)
Quarter: 2004Q4

REPORT INFORMATION
  Report Type: 
  Country: None (occurrence: None)
  Receive Date: 20040928
  Receipt Date: 20040817
  Transmission Date: 20050328
  Serious: No
  Sender: FDA-Public Use
  Company Number: 04P-163-0270845-00

PATIENT
  Age: 52 Year
  Sex: Female
  Weight: 54.4316 kg

DRUGS (3)
  1. HUMIRA [Suspect]
     Indication: RHEUMATOID ARTHRITIS
     Dosage: 40 MG, 1 IN 2 WK, SUBCUTAENOUS
     Route: 058
     Dates: start: 20040601
  2. METHOTREXATE [Concomitant]
  3. MULTIVITAMIN [Concomitant]

REACTIONS (3)
  - ASTHENIA [None]
  - FEELING ABNORMAL [None]
  - NASOPHARYNGITIS [None]
